FAERS Safety Report 4277958-7 (Version None)
Quarter: 2004Q1

REPORT INFORMATION
  Report Type: 
  Country: None (occurrence: None)
  Receive Date: 20040121
  Receipt Date: 20030217
  Transmission Date: 20041129
  Serious: Yes (Hospitalization)
  Sender: FDA-Public Use
  Company Number: 2003-01-4156

PATIENT
  Age: 4 Month

DRUGS (1)
  1. SUBUTEX [Suspect]
     Indication: DRUG DEPENDENCE
     Dosage: 0.8-2MG QD SUBLINGUAL
     Route: 060

REACTIONS (2)
  - DIARRHOEA NEONATAL [None]
  - DRUG EXPOSURE DURING PREGNANCY [None]
